FAERS Safety Report 17829579 (Version 1)
Quarter: 2020Q2

REPORT INFORMATION
  Report Type: Spontaneous
  Country: US (occurrence: US)
  Receive Date: 20200527
  Receipt Date: 20200527
  Transmission Date: 20200714
  Serious: Yes (Death, Disabling, Other)
  Sender: FDA-Public Use
  Company Number: US-SA-2020SA134066

PATIENT
  Sex: Female

DRUGS (1)
  1. ZANTAC 75 [Suspect]
     Active Substance: RANITIDINE HYDROCHLORIDE
     Dosage: UNK, QD
     Dates: start: 2014, end: 201805

REACTIONS (8)
  - Injury [Unknown]
  - Pancreatic carcinoma [Fatal]
  - Disability [Unknown]
  - Renal cancer [Unknown]
  - Pain [Unknown]
  - Anhedonia [Unknown]
  - Deformity [Unknown]
  - Anxiety [Unknown]

NARRATIVE: CASE EVENT DATE: 201801
